FAERS Safety Report 4383894-8 (Version None)
Quarter: 2004Q2

REPORT INFORMATION
  Report Type: 
  Country: None (occurrence: None)
  Receive Date: 20040623
  Receipt Date: 20040623
  Transmission Date: 20050107
  Serious: No
  Sender: FDA-Public Use
  Company Number: None

PATIENT
  Age: 62 Year
  Sex: Female
  Weight: 72.5755 kg

DRUGS (2)
  1. SEREVENT DISKUS) GLAXO SMITHKLINE [Suspect]
     Indication: ASTHMA
     Dosage: DON'T REMEMBER
  2. ADVAIR DISKUS GLAXO SMITHKLINE [Suspect]
     Indication: ASTHMA
     Dosage: 1 PUFF Q 12H

REACTIONS (6)
  - ARTHRALGIA [None]
  - ASTHENIA [None]
  - DIFFICULTY IN WALKING [None]
  - MYALGIA [None]
  - OEDEMA PERIPHERAL [None]
  - PAIN IN EXTREMITY [None]
